FAERS Safety Report 14714656 (Version 6)
Quarter: 2018Q4

REPORT INFORMATION
  Report Type: Spontaneous
  Country: US (occurrence: US)
  Receive Date: 20180404
  Receipt Date: 20181130
  Transmission Date: 20190204
  Serious: Yes (Death, Other)
  Sender: FDA-Public Use
  Company Number: US-PFIZER INC-2018136540

PATIENT
  Age: 67 Year
  Sex: Male

DRUGS (23)
  1. TUMS [Concomitant]
     Active Substance: CALCIUM CARBONATE
     Indication: ANTACID THERAPY
     Dosage: UNK, AS NEEDED
  2. PROTONIX [Suspect]
     Active Substance: PANTOPRAZOLE SODIUM
     Dosage: UNK
     Route: 065
     Dates: start: 199001
  3. PROTONIX [Suspect]
     Active Substance: PANTOPRAZOLE SODIUM
     Dosage: UNK
     Route: 048
     Dates: start: 201301, end: 20160408
  4. ASPIRIN. [Concomitant]
     Active Substance: ASPIRIN
     Indication: PAIN
     Dosage: UNK, AS NEEDED
  5. NEXIUM [Suspect]
     Active Substance: ESOMEPRAZOLE MAGNESIUM
     Dosage: UNK
     Route: 048
     Dates: start: 199001
  6. PREVACID 24 HR [Suspect]
     Active Substance: LANSOPRAZOLE
     Dosage: UNK
     Route: 065
     Dates: start: 199001
  7. DEXILANT [Suspect]
     Active Substance: DEXLANSOPRAZOLE
     Dosage: UNK
     Route: 048
     Dates: start: 201301, end: 20160408
  8. PRILOSEC [Suspect]
     Active Substance: OMEPRAZOLE MAGNESIUM
     Dosage: 20 MG, UNK
     Route: 048
     Dates: start: 2015, end: 2016
  9. VITAMINS [Concomitant]
     Active Substance: VITAMINS
     Indication: ROUTINE HEALTH MAINTENANCE
     Dosage: UNK, AS NEEDED
  10. ROLAIDS [Concomitant]
     Active Substance: CALCIUM CARBONATE\MAGNESIUM HYDROXIDE
     Indication: ANTACID THERAPY
     Dosage: UNK, AS NEEDED
  11. PANTOPRAZOLE [Suspect]
     Active Substance: PANTOPRAZOLE
     Indication: GASTROOESOPHAGEAL REFLUX DISEASE
     Dosage: 40 MG, UNK
     Route: 048
     Dates: start: 20151203, end: 20160407
  12. OXYCODONE [Concomitant]
     Active Substance: OXYCODONE
     Indication: PAIN
     Dosage: UNK
     Dates: start: 2013
  13. DEXILANT [Suspect]
     Active Substance: DEXLANSOPRAZOLE
     Dosage: UNK
     Route: 065
     Dates: start: 199001
  14. ESOMEPRAZOLE. [Suspect]
     Active Substance: ESOMEPRAZOLE MAGNESIUM
     Indication: GASTROOESOPHAGEAL REFLUX DISEASE
     Dosage: 40 MG, UNK
     Route: 048
     Dates: start: 20150629, end: 20150715
  15. PRILOSEC [Suspect]
     Active Substance: OMEPRAZOLE MAGNESIUM
     Indication: GASTROOESOPHAGEAL REFLUX DISEASE
     Dosage: UNK
     Route: 048
     Dates: start: 199001
  16. NEXIUM [Suspect]
     Active Substance: ESOMEPRAZOLE MAGNESIUM
     Dosage: UNK
     Route: 048
     Dates: start: 201301, end: 20160408
  17. NEXIUM 24HR [Suspect]
     Active Substance: ESOMEPRAZOLE MAGNESIUM
     Dosage: UNK
     Route: 048
  18. NEXIUM 24HR [Suspect]
     Active Substance: ESOMEPRAZOLE MAGNESIUM
     Dosage: UNK
     Dates: end: 20160408
  19. PREVACID [Suspect]
     Active Substance: LANSOPRAZOLE
     Dosage: UNK
     Route: 065
     Dates: start: 199001
  20. PREVACID [Suspect]
     Active Substance: LANSOPRAZOLE
     Dosage: UNK
     Route: 048
     Dates: start: 201301, end: 20160408
  21. PREVACID 24 HR [Suspect]
     Active Substance: LANSOPRAZOLE
     Dosage: UNK
     Dates: start: 201301, end: 20160408
  22. PRILOSEC OTC [Suspect]
     Active Substance: OMEPRAZOLE MAGNESIUM
     Indication: GASTROOESOPHAGEAL REFLUX DISEASE
     Dosage: UNK
  23. OMEPRAZOLE. [Suspect]
     Active Substance: OMEPRAZOLE
     Indication: GASTROOESOPHAGEAL REFLUX DISEASE
     Dosage: 20 MG, UNK
     Route: 048
     Dates: start: 2015, end: 2016

REACTIONS (5)
  - Acute kidney injury [Fatal]
  - Cardiac arrest [Fatal]
  - Chronic kidney disease [Fatal]
  - Coronary artery disease [Fatal]
  - Encephalopathy [Fatal]
